FAERS Safety Report 12621635 (Version 1)
Quarter: 2016Q3

REPORT INFORMATION
  Report Type: Report from Study
  Country: BR (occurrence: BR)
  Receive Date: 20160804
  Receipt Date: 20160804
  Transmission Date: 20161109
  Serious: Yes (Hospitalization)
  Sender: FDA-Public Use
  Company Number: BR-ABBVIE-16K-020-1692087-00

PATIENT
  Age: 28 Year
  Sex: Male
  Weight: 53 kg

DRUGS (4)
  1. RIVOTRIL [Concomitant]
     Active Substance: CLONAZEPAM
     Indication: SEIZURE
     Route: 048
  2. HIDANTAL [Concomitant]
     Active Substance: PHENYTOIN SODIUM
     Indication: SEIZURE
     Route: 048
  3. TEGRETOL [Concomitant]
     Active Substance: CARBAMAZEPINE
     Indication: SEIZURE
     Route: 048
     Dates: start: 20160723
  4. HUMIRA [Suspect]
     Active Substance: ADALIMUMAB
     Indication: CROHN^S DISEASE
     Route: 058
     Dates: start: 20150921

REACTIONS (3)
  - Pneumonia [Recovered/Resolved]
  - Vomiting [Recovered/Resolved]
  - Rhinorrhoea [Recovered/Resolved]

NARRATIVE: CASE EVENT DATE: 20160613
